FAERS Safety Report 11795948 (Version 1)
Quarter: 2015Q4

REPORT INFORMATION
  Report Type: Spontaneous
  Country: HR (occurrence: HR)
  Receive Date: 20151203
  Receipt Date: 20151203
  Transmission Date: 20160305
  Serious: Yes (Other)
  Sender: FDA-Public Use
  Company Number: HR-ROCHE-1671581

PATIENT
  Age: 76 Year
  Sex: Male
  Weight: 75 kg

DRUGS (9)
  1. METHOTREXATE (METHOTREXATE SODIUM) [Concomitant]
     Active Substance: METHOTREXATE SODIUM
     Route: 065
  2. ROSWERA [Concomitant]
     Route: 065
  3. FOLACIN [Concomitant]
     Active Substance: FOLIC ACID
     Route: 065
  4. TAMSULOSIN [Concomitant]
     Active Substance: TAMSULOSIN
     Route: 065
  5. BIO C [Concomitant]
     Route: 065
  6. CERSON [Concomitant]
     Active Substance: NITRAZEPAM
     Dosage: AS NEEDED
     Route: 065
  7. LORISTA [Concomitant]
     Active Substance: LOSARTAN POTASSIUM
     Route: 065
  8. ROACTEMRA [Suspect]
     Active Substance: TOCILIZUMAB
     Indication: RHEUMATOID ARTHRITIS
     Dosage: MOST RECENT DOSE RECEIVED ON 05/NOV/2015
     Route: 042
     Dates: start: 20110509
  9. BRUFEN [Concomitant]
     Active Substance: IBUPROFEN
     Route: 065

REACTIONS (1)
  - Basal cell carcinoma [Recovered/Resolved]

NARRATIVE: CASE EVENT DATE: 20150501
